FAERS Safety Report 4511044-3 (Version None)
Quarter: 2004Q4

REPORT INFORMATION
  Report Type: 
  Country: None (occurrence: None)
  Receive Date: 20041018
  Receipt Date: 20040907
  Transmission Date: 20050328
  Serious: No
  Sender: FDA-Public Use
  Company Number: 208891

PATIENT
  Age: 38 Year
  Sex: Male

DRUGS (2)
  1. XOLAIR [Suspect]
     Indication: HYPERSENSITIVITY
     Dosage: 300 MG, 1/MONTH, SUBCUTANEOUS
     Route: 058
     Dates: start: 20030901, end: 20040401
  2. VITAMIN D [Concomitant]

REACTIONS (2)
  - CHILLS [None]
  - SKIN BURNING SENSATION [None]
